FAERS Safety Report 5808056-6 (Version None)
Quarter: 2008Q3

REPORT INFORMATION
  Report Type: 
  Country: None (occurrence: None)
  Receive Date: 20080708
  Receipt Date: 20080623
  Transmission Date: 20090109
  Serious: Yes (Hospitalization)
  Sender: FDA-Public Use
  Company Number: DSA_32065_2008

PATIENT
  Sex: Male

DRUGS (1)
  1. LORAZEPAM [Suspect]
     Dosage: (40 MG 1X ORAL)
     Route: 048
     Dates: start: 20080614, end: 20080614

REACTIONS (5)
  - BACK PAIN [None]
  - DRUG ABUSE [None]
  - FATIGUE [None]
  - INTENTIONAL OVERDOSE [None]
  - ORTHOSTATIC HYPOTENSION [None]
